FAERS Safety Report 14480978 (Version 1)
Quarter: 2018Q1

REPORT INFORMATION
  Report Type: Spontaneous
  Country: US (occurrence: US)
  Receive Date: 20180201
  Receipt Date: 20180201
  Transmission Date: 20180509
  Serious: Yes (Hospitalization)
  Sender: FDA-Public Use
  Company Number: None

PATIENT

DRUGS (3)
  1. METAXALONE. [Concomitant]
     Active Substance: METAXALONE
  2. INSULIN ASPART [Suspect]
     Active Substance: INSULIN ASPART
  3. LEVETIRACETAM. [Suspect]
     Active Substance: LEVETIRACETAM

REACTIONS (3)
  - Laceration [None]
  - Confusional state [None]
  - Haematoma [None]
